FAERS Safety Report 24701596 (Version 1)
Quarter: 2024Q4

REPORT INFORMATION
  Report Type: Spontaneous
  Country: US (occurrence: None)
  Receive Date: 20241205
  Receipt Date: 20241205
  Transmission Date: 20250115
  Serious: Yes (Hospitalization)
  Sender: Public
  Company Number: None

PATIENT
  Age: 28 Year
  Sex: Female

DRUGS (1)
  1. ICATIBANT ACETATE [Suspect]
     Active Substance: ICATIBANT ACETATE
     Indication: Complement factor abnormal
     Dosage: INJECT 1 SYRINGE UNDER THE SKIN IN ABDOMINAL AREA AS NEEDED FOR HAVE ATTACKS. IF NEEDED INJECT ONE A
     Route: 058
     Dates: start: 202101

REACTIONS (3)
  - Weight increased [None]
  - Gastrointestinal disorder [None]
  - Gastrointestinal oedema [None]

NARRATIVE: CASE EVENT DATE: 20240924
